FAERS Safety Report 5865339-1 (Version None)
Quarter: 2008Q3

REPORT INFORMATION
  Report Type: 
  Country: None (occurrence: None)
  Receive Date: 20080829
  Receipt Date: 20080820
  Transmission Date: 20090109
  Serious: Yes (Other)
  Sender: FDA-Public Use
  Company Number: AU-ASTRAZENECA-2008AP06425

PATIENT

DRUGS (2)
  1. NAROPIN [Suspect]
  2. XYLOCAINE W/ EPINEPHRINE [Suspect]

REACTIONS (1)
  - NEUROTOXICITY [None]
